FAERS Safety Report 9174237 (Version 1)
Quarter: 2013Q1

REPORT INFORMATION
  Report Type: Spontaneous
  Country: US (occurrence: US)
  Receive Date: 20130320
  Receipt Date: 20130320
  Transmission Date: 20140127
  Serious: Yes (Other)
  Sender: FDA-Public Use
  Company Number: CHPA2013US004316

PATIENT
  Age: 63 Year
  Sex: Female

DRUGS (17)
  1. EXCEDRIN PM [Suspect]
     Indication: SLEEP DISORDER
     Dosage: 1 DF, QHS
     Route: 048
  2. PRILOSEC [Concomitant]
     Dosage: UNK, 1-3 TIMES DAIY
     Route: 048
  3. WELLBUTRIN [Concomitant]
     Dosage: 1 DF, QD
     Route: 048
  4. TRAZODONE [Concomitant]
     Indication: SLEEP DISORDER
     Dosage: 2 DF, QHS
     Route: 048
  5. GABAPENTIN [Concomitant]
     Indication: HEADACHE
     Dosage: UNK, 1 TO 3 TIMES DAILY
     Route: 048
  6. GABAPENTIN [Concomitant]
     Indication: MUSCULOSKELETAL DISCOMFORT
  7. GABAPENTIN [Concomitant]
     Indication: PAIN
  8. PRAVASTATIN [Concomitant]
     Indication: UNEVALUABLE EVENT
     Dosage: UNK, QHS
     Route: 048
  9. ACYCLOVIR [Concomitant]
     Dosage: UNK, PRN
     Route: 048
  10. OMEPRAZOLE [Concomitant]
     Dosage: 2 DF, QD
     Route: 048
  11. SINGULAR [Concomitant]
     Indication: SINUSITIS
     Dosage: UNK, PRN
  12. MULTIVIT [Concomitant]
     Dosage: 1 DF, QD
     Route: 048
  13. VIT D [Concomitant]
     Dosage: 1 DF, QD
     Route: 048
  14. AGRENOX [Concomitant]
     Indication: CEREBROVASCULAR ACCIDENT
     Dosage: UNK, BID
     Route: 048
  15. CALCIUM 600 [Concomitant]
     Dosage: 3 DF, QD
     Route: 048
  16. XANAX [Concomitant]
     Indication: ANXIETY
     Dosage: UNK, 1-3 TIME DAILY
  17. ADDERALL [Concomitant]
     Indication: ATTENTION DEFICIT/HYPERACTIVITY DISORDER
     Dosage: UNK, BID

REACTIONS (14)
  - Cerebrovascular accident [Recovered/Resolved with Sequelae]
  - Upper limb fracture [Unknown]
  - Hypertension [Not Recovered/Not Resolved]
  - Loss of consciousness [Recovered/Resolved]
  - Memory impairment [Not Recovered/Not Resolved]
  - Arthritis [Not Recovered/Not Resolved]
  - Vertigo [Not Recovered/Not Resolved]
  - Claustrophobia [Not Recovered/Not Resolved]
  - Fall [Unknown]
  - Musculoskeletal pain [Unknown]
  - Back pain [Unknown]
  - Nuclear magnetic resonance imaging abnormal [Unknown]
  - Off label use [Unknown]
  - Underdose [Unknown]
